FAERS Safety Report 5926467-5 (Version None)
Quarter: 2008Q4

REPORT INFORMATION
  Report Type: 
  Country: None (occurrence: None)
  Receive Date: 20081022
  Receipt Date: 20081007
  Transmission Date: 20090506
  Serious: Yes (Hospitalization)
  Sender: FDA-Public Use
  Company Number: PHHY2008JP24586

PATIENT
  Sex: Male
  Weight: 51 kg

DRUGS (12)
  1. DIOVAN [Suspect]
     Indication: HYPERTENSION
     Dosage: 40 MG, QD
     Route: 048
     Dates: start: 20071005
  2. CORINAE L [Concomitant]
     Indication: HYPERTENSION
     Dosage: 20 MG
     Route: 048
     Dates: start: 20071003
  3. DEPAS [Concomitant]
     Dosage: 1.5 MG
     Route: 048
     Dates: start: 20071003
  4. CELOOP [Concomitant]
     Dosage: 150 MG
     Route: 048
     Dates: start: 20071003
  5. TANKARU [Concomitant]
     Dosage: 1500 MG
     Route: 048
     Dates: start: 20071003
  6. PURSENNIDE [Concomitant]
     Dosage: 24 MG
     Route: 048
     Dates: start: 20071003
  7. AMOBAN [Concomitant]
     Dosage: 7.5 MG
     Route: 048
     Dates: start: 20071003
  8. ASPIRIN [Concomitant]
     Dosage: 100 MG
     Route: 048
     Dates: start: 20071003
  9. PREDONINE [Concomitant]
     Dosage: 2.5 MG
     Route: 048
     Dates: start: 20071003
  10. RISUMIC [Concomitant]
     Dosage: 10 MG
     Route: 048
     Dates: start: 20071003
  11. HERBESSER [Concomitant]
     Dosage: 60 MG
     Route: 048
     Dates: start: 20071003
  12. BASEN [Concomitant]
     Dosage: 0.6 MG
     Route: 048
     Dates: start: 20071003

REACTIONS (5)
  - ANGINA PECTORIS [None]
  - ARTERIOSCLEROSIS OBLITERANS [None]
  - BLOOD CREATININE INCREASED [None]
  - BLOOD PRESSURE INCREASED [None]
  - SHUNT MALFUNCTION [None]
